FAERS Safety Report 25155535 (Version 1)
Quarter: 2025Q2

REPORT INFORMATION
  Report Type: Spontaneous
  Country: GB (occurrence: GB)
  Receive Date: 20250403
  Receipt Date: 20250403
  Transmission Date: 20250716
  Serious: Yes (Disabling, Other)
  Sender: ESPERION THERAPEUTICS
  Company Number: None

PATIENT
  Age: 77 Year
  Sex: Male
  Weight: 94 kg

DRUGS (1)
  1. BEMPEDOIC ACID [Suspect]
     Active Substance: BEMPEDOIC ACID
     Indication: Blood cholesterol
     Dosage: 180 MG, QD
     Route: 065
     Dates: start: 20250220, end: 20250311

REACTIONS (1)
  - Myalgia [Not Recovered/Not Resolved]

NARRATIVE: CASE EVENT DATE: 20250311
